FAERS Safety Report 17837525 (Version 2)
Quarter: 2020Q3

REPORT INFORMATION
  Report Type: Report from Study
  Country: US (occurrence: US)
  Receive Date: 20200528
  Receipt Date: 20200711
  Transmission Date: 20201103
  Serious: Yes (Other)
  Sender: FDA-Public Use
  Company Number: NVSC2020US146002

PATIENT
  Sex: Male

DRUGS (1)
  1. COSENTYX [Suspect]
     Active Substance: SECUKINUMAB
     Indication: ANKYLOSING SPONDYLITIS
     Dosage: 150 MG, QW (WEEKLY FOR 5 WEEKS AND THEN MONTHLY)
     Route: 058
     Dates: start: 20200123

REACTIONS (3)
  - Ankylosing spondylitis [Unknown]
  - Mobility decreased [Unknown]
  - Pain [Unknown]
